FAERS Safety Report 18142983 (Version 3)
Quarter: 2020Q3

REPORT INFORMATION
  Report Type: Spontaneous
  Country: PA (occurrence: PA)
  Receive Date: 20200813
  Receipt Date: 20200922
  Transmission Date: 20201103
  Serious: Yes (Other)
  Sender: FDA-Public Use
  Company Number: PA-AMGEN-PANSP2020129647

PATIENT
  Age: 73 Year
  Sex: Female

DRUGS (2)
  1. ENBREL [Suspect]
     Active Substance: ETANERCEPT
     Indication: RHEUMATOID ARTHRITIS
     Dosage: UNK
     Route: 065
  2. ENBREL [Suspect]
     Active Substance: ETANERCEPT
     Dosage: UNK
     Route: 065
     Dates: start: 202004

REACTIONS (6)
  - Vertigo [Unknown]
  - Stress [Unknown]
  - Deafness unilateral [Unknown]
  - Gait disturbance [Unknown]
  - Endocarditis [Unknown]
  - Nervous system disorder [Unknown]

NARRATIVE: CASE EVENT DATE: 2020
